FAERS Safety Report 9165514 (Version 1)
Quarter: 2013Q1

REPORT INFORMATION
  Report Type: Spontaneous
  Country: US (occurrence: None)
  Receive Date: 20130301
  Receipt Date: 20130301
  Transmission Date: 20140127
  Serious: Yes (Other)
  Sender: FDA-Public Use
  Company Number: TPA2013A01685

PATIENT
  Age: 62 Year
  Sex: Male
  Weight: 95.26 kg

DRUGS (6)
  1. ACTOS (PIOGLITAZONE HYDROCHLORIDE) [Suspect]
     Indication: TYPE 2 DIABETES MELLITUS
     Dates: start: 20050909, end: 20060524
  2. METFORMIN (METFORMIN) [Concomitant]
  3. AVANDIA (ROSIGLITAZONE MALEATE) [Concomitant]
  4. GLUCOPHAGE (METFORMIN HYDROCHLORIDE) [Concomitant]
  5. GLUCOTROL (GLIPIZIDE) [Concomitant]
  6. AMARYL (GLIMEPIRIDE) [Concomitant]

REACTIONS (6)
  - Bladder transitional cell carcinoma metastatic [None]
  - Urethral stenosis [None]
  - Urinary retention [None]
  - Intestinal obstruction [None]
  - Ileus [None]
  - Ureteric injury [None]
